FAERS Safety Report 17093277 (Version 1)
Quarter: 2019Q4

REPORT INFORMATION
  Report Type: Spontaneous
  Country: GB (occurrence: GB)
  Receive Date: 20191129
  Receipt Date: 20191129
  Transmission Date: 20200122
  Serious: Yes (Other)
  Sender: FDA-Public Use
  Company Number: GB-TEVA-2019-GB-1143484

PATIENT
  Age: 58 Year
  Sex: Female
  Weight: 83 kg

DRUGS (22)
  1. SIBUTRAMINE [Concomitant]
     Active Substance: SIBUTRAMINE
     Dosage: 1 DOSAGE FORMS
     Dates: start: 20030903, end: 20191017
  2. VENLAFAXINE [Concomitant]
     Active Substance: VENLAFAXINE HYDROCHLORIDE
     Dosage: 1 DOSAGE FORMS
     Dates: start: 20030903, end: 20191017
  3. COCODAMOL [Concomitant]
     Active Substance: ACETAMINOPHEN\CODEINE PHOSPHATE
     Dosage: 8 DOSAGE FORMS
     Dates: start: 20070525, end: 20191017
  4. ORLISTAT. [Concomitant]
     Active Substance: ORLISTAT
     Dosage: 3 DOSAGE FORMS
     Dates: start: 20060421, end: 20191017
  5. COMBIVENT [Concomitant]
     Active Substance: ALBUTEROL SULFATE\IPRATROPIUM BROMIDE
     Dosage: 8 DOSAGE FORMS
     Dates: start: 20050809, end: 20191017
  6. AMITRIPTYLINE HYDROCHLORIDE. [Concomitant]
     Active Substance: AMITRIPTYLINE HYDROCHLORIDE
     Dosage: AT NIGHT 2 DOSAGE FORMS
     Dates: start: 20171113, end: 20191017
  7. PARACETAMOL [Concomitant]
     Active Substance: ACETAMINOPHEN
     Dosage: UP TO FOUR TIMES A DAY
     Dates: start: 20040616, end: 20191017
  8. ZOPICLONE [Concomitant]
     Active Substance: ZOPICLONE
     Dosage: 1 DOSAGE FORMS
     Dates: start: 20000922, end: 20191017
  9. LANSOPRAZOLE. [Concomitant]
     Active Substance: LANSOPRAZOLE
     Dosage: 1 DOSAGE FORMS
     Dates: start: 20020718, end: 20191017
  10. OMEPRAZOLE. [Concomitant]
     Active Substance: OMEPRAZOLE
     Dosage: 1 DOSAGE FORMS
     Dates: start: 20030903, end: 20191017
  11. TRIMETHOPRIM. [Suspect]
     Active Substance: TRIMETHOPRIM
     Dosage: 100 MG
     Dates: start: 20171204
  12. CELECOXIB. [Concomitant]
     Active Substance: CELECOXIB
     Dosage: 2 DOSAGE FORMS
     Dates: start: 20030903, end: 20191017
  13. PREDNISOLONE. [Concomitant]
     Active Substance: PREDNISOLONE
     Dosage: IN THE MORNING, 6 DOSAGE FORMS
     Dates: start: 20050725, end: 20191017
  14. NAPROXEN. [Concomitant]
     Active Substance: NAPROXEN
     Dosage: 2 DOSAGE FORMS
     Dates: start: 20191014, end: 20191015
  15. LACTULOSE. [Concomitant]
     Active Substance: LACTULOSE
     Dosage: 20 ML PER DAY
     Dates: start: 20020809, end: 20191017
  16. TRAMADOL. [Concomitant]
     Active Substance: TRAMADOL
     Dosage: 3 DOSAGE FORMS
     Dates: start: 20160707, end: 20191017
  17. DIAZEPAM. [Concomitant]
     Active Substance: DIAZEPAM
     Dosage: 1 DOSAGE FORMS
     Dates: start: 20191014, end: 20191015
  18. ZOLPIDEM [Concomitant]
     Active Substance: ZOLPIDEM TARTRATE
     Dosage: TAKEN AT NIGHT, 1 DOSAGE PER DAY
     Dates: start: 20060324, end: 20191017
  19. CITALOPRAM [Concomitant]
     Active Substance: CITALOPRAM HYDROBROMIDE
     Dosage: 2 DOSAGE FORMS
     Dates: start: 20010523, end: 20191017
  20. MATRIFEN [Concomitant]
     Active Substance: FENTANYL
     Dosage: 1 DOSAGE FORMS
     Dates: start: 20160510, end: 20191017
  21. LOFEPRAMINE [Concomitant]
     Active Substance: LOFEPRAMINE
     Dosage: ONE TO BE TAKEN IN THE MORNING AND TWO AT NIGHT
     Dates: start: 20040206, end: 20191017
  22. LEVOTHYROXINE. [Concomitant]
     Active Substance: LEVOTHYROXINE
     Dosage: EACH MORNING AT LEAST 30 MINUTE...1 DOSAGE FORMS
     Dates: start: 20171129, end: 20191017

REACTIONS (1)
  - Rash macular [Unknown]
